FAERS Safety Report 7245585-5 (Version None)
Quarter: 2011Q1

REPORT INFORMATION
  Report Type: 
  Country: None (occurrence: None)
  Receive Date: 20110126
  Receipt Date: 20110120
  Transmission Date: 20110831
  Serious: Yes (Death)
  Sender: FDA-Public Use
  Company Number: SE-PFIZER INC-2011012941

PATIENT
  Age: 30 Year
  Sex: Male

DRUGS (9)
  1. MORPHINE SULFATE [Suspect]
  2. CODEINE [Suspect]
  3. PARACETAMOL [Suspect]
  4. SERTRALINE HYDROCHLORIDE [Suspect]
  5. ALPRAZOLAM [Suspect]
  6. NANDROLONE [Suspect]
  7. CARISOPRODOL [Suspect]
  8. AMPHETAMINE [Suspect]
  9. ZOLPIDEM [Suspect]

REACTIONS (1)
  - OVERDOSE [None]
